FAERS Safety Report 13977021 (Version 1)
Quarter: 2017Q3

REPORT INFORMATION
  Report Type: Spontaneous
  Country: US (occurrence: US)
  Receive Date: 20170915
  Receipt Date: 20170915
  Transmission Date: 20171128
  Serious: No
  Sender: FDA-Public Use
  Company Number: US-ROCHE-674229

PATIENT
  Age: 51 Year
  Sex: Female
  Weight: 59 kg

DRUGS (12)
  1. CYTOXAN [Suspect]
     Active Substance: CYCLOPHOSPHAMIDE
     Indication: BREAST CANCER
     Route: 042
     Dates: start: 20090720, end: 20090720
  2. CYTOXAN [Suspect]
     Active Substance: CYCLOPHOSPHAMIDE
     Dosage: ROUTE: INTRAVENOUS(NOT OTHERWISE SPECIFIED).
     Route: 042
     Dates: start: 2009, end: 2009
  3. HERCEPTIN [Suspect]
     Active Substance: TRASTUZUMAB
     Indication: BREAST CANCER
     Route: 041
     Dates: start: 20090720, end: 20090720
  4. TAXOTERE [Suspect]
     Active Substance: DOCETAXEL
     Indication: BREAST CANCER
     Route: 041
     Dates: start: 20090720, end: 20090720
  5. TAXOTERE [Suspect]
     Active Substance: DOCETAXEL
     Route: 041
     Dates: start: 2009, end: 2009
  6. HERCEPTIN [Suspect]
     Active Substance: TRASTUZUMAB
     Route: 041
     Dates: start: 2009, end: 2009
  7. HERCEPTIN [Suspect]
     Active Substance: TRASTUZUMAB
     Route: 041
     Dates: start: 20090928, end: 20090928
  8. TAXOTERE [Suspect]
     Active Substance: DOCETAXEL
     Route: 041
     Dates: start: 20090928, end: 20090928
  9. CYTOXAN [Suspect]
     Active Substance: CYCLOPHOSPHAMIDE
     Route: 042
     Dates: start: 2009, end: 2009
  10. CYTOXAN [Suspect]
     Active Substance: CYCLOPHOSPHAMIDE
     Route: 042
     Dates: start: 20090928, end: 20090928
  11. HERCEPTIN [Suspect]
     Active Substance: TRASTUZUMAB
     Route: 041
     Dates: start: 2009, end: 2009
  12. TAXOTERE [Suspect]
     Active Substance: DOCETAXEL
     Route: 041
     Dates: start: 2009, end: 2009

REACTIONS (3)
  - Erythema [Unknown]
  - Pyrexia [Not Recovered/Not Resolved]
  - Photosensitivity reaction [Unknown]

NARRATIVE: CASE EVENT DATE: 200909
